FAERS Safety Report 6135653-3 (Version None)
Quarter: 2009Q1

REPORT INFORMATION
  Report Type: 
  Country: None (occurrence: None)
  Receive Date: 20090327
  Receipt Date: 20080826
  Transmission Date: 20090719
  Serious: No
  Sender: FDA-Public Use
  Company Number: US-ASTRAZENECA-2008UW11991

PATIENT
  Age: 71 Year
  Sex: Female

DRUGS (1)
  1. LISINOPRIL [Suspect]
     Dosage: 10 MG
     Route: 048

REACTIONS (5)
  - ANXIETY [None]
  - COUGH [None]
  - HEART RATE ABNORMAL [None]
  - HYPERTENSION [None]
  - PALPITATIONS [None]
